FAERS Safety Report 13456434 (Version 1)
Quarter: 2017Q2

REPORT INFORMATION
  Report Type: Report from Study
  Country: DE (occurrence: DE)
  Receive Date: 20170418
  Receipt Date: 20170418
  Transmission Date: 20170830
  Serious: Yes (Hospitalization)
  Sender: FDA-Public Use
  Company Number: DE-BIOGEN-2017BI00387873

PATIENT
  Age: 75 Year
  Sex: Female

DRUGS (1)
  1. TECFIDERA [Suspect]
     Active Substance: DIMETHYL FUMARATE
     Indication: MULTIPLE SCLEROSIS
     Dosage: MAINTENANCE DOSE
     Route: 048
     Dates: start: 20140428

REACTIONS (3)
  - Cardiac failure [Recovered/Resolved with Sequelae]
  - Eye contusion [Unknown]
  - Nasal injury [Unknown]

NARRATIVE: CASE EVENT DATE: 20170121
